FAERS Safety Report 22372669 (Version 2)
Quarter: 2023Q4

REPORT INFORMATION
  Report Type: Report from Study
  Country: US (occurrence: US)
  Receive Date: 20230526
  Receipt Date: 20231214
  Transmission Date: 20240110
  Serious: Yes (Hospitalization)
  Sender: FDA-Public Use
  Company Number: US-PFIZER INC-US-GBT-22-02113

PATIENT
  Age: 52 Year
  Sex: Female

DRUGS (11)
  1. VOXELOTOR [Suspect]
     Active Substance: VOXELOTOR
     Dosage: 1500 MG, 1X/DAY
     Route: 048
     Dates: start: 20200520, end: 20200612
  2. VOXELOTOR [Suspect]
     Active Substance: VOXELOTOR
     Dosage: 1500 MG, 1X/DAY
     Route: 048
     Dates: start: 20200701, end: 20210108
  3. VOXELOTOR [Suspect]
     Active Substance: VOXELOTOR
     Dosage: 1500 MG, 1X/DAY
     Route: 048
     Dates: start: 20210602
  4. ASCORBIC ACID [Concomitant]
     Active Substance: ASCORBIC ACID
     Dosage: 400 IU, 1X/DAY
     Route: 048
     Dates: start: 20150417
  5. MS CONTIN [Concomitant]
     Active Substance: MORPHINE SULFATE
     Indication: Sickle cell disease
     Dosage: 15 MG, 1X/DAY
     Route: 048
     Dates: start: 20150414
  6. REMERON [Concomitant]
     Active Substance: MIRTAZAPINE
     Indication: Sickle cell disease
     Dosage: 7.5 MG, 1X/DAY
     Route: 048
     Dates: start: 20201104
  7. LEVETIRACETAM [Concomitant]
     Active Substance: LEVETIRACETAM
     Dosage: 1000 MG, 1X/DAY
     Route: 048
     Dates: start: 20150415
  8. HYDROMORPHONE [Concomitant]
     Active Substance: HYDROMORPHONE
     Indication: Sickle cell disease
     Dosage: 4 MG
     Route: 048
     Dates: start: 20140723
  9. FOLIC ACID [Concomitant]
     Active Substance: FOLIC ACID
     Indication: Sickle cell disease
     Dosage: 1 MG, 1X/DAY
     Route: 048
     Dates: start: 20150416
  10. DILANTIN EXTENDED [Concomitant]
     Dosage: 100 MG, 1X/DAY
     Route: 048
     Dates: start: 20150416
  11. CALCIUM CARBONATE [Concomitant]
     Active Substance: CALCIUM CARBONATE
     Indication: Sickle cell disease
     Dosage: 400 IU, 1X/DAY
     Route: 048
     Dates: start: 20150417

REACTIONS (1)
  - Goitre [Recovered/Resolved]

NARRATIVE: CASE EVENT DATE: 20210109
